FAERS Safety Report 10419370 (Version 2)
Quarter: 2014Q4

REPORT INFORMATION
  Report Type: Spontaneous
  Country: US (occurrence: US)
  Receive Date: 20140829
  Receipt Date: 20141003
  Transmission Date: 20150528
  Serious: Yes (Hospitalization, Other)
  Sender: FDA-Public Use
  Company Number: US-ELI_LILLY_AND_COMPANY-US201408010579

PATIENT
  Sex: Female

DRUGS (4)
  1. CISPLATIN. [Suspect]
     Active Substance: CISPLATIN
     Indication: UTERINE LEIOMYOSARCOMA
     Dosage: 70 MG/M2, OTHER
     Route: 042
  2. DOVITINIB [Suspect]
     Active Substance: DOVITINIB LACTATE
     Dosage: UNK, OTHER
     Route: 048
  3. GEMCITABINE HYDROCHLORIDE. [Suspect]
     Active Substance: GEMCITABINE HYDROCHLORIDE
     Indication: UTERINE LEIOMYOSARCOMA
     Dosage: 1000 MG/M2, OTHER
     Route: 042
  4. DOVITINIB [Suspect]
     Active Substance: DOVITINIB LACTATE
     Indication: UTERINE LEIOMYOSARCOMA
     Dosage: 300 MG, OTHER
     Route: 048

REACTIONS (2)
  - Peripheral artery thrombosis [Unknown]
  - Neutropenia [Unknown]
